FAERS Safety Report 6532618-4 (Version None)
Quarter: 2010Q1

REPORT INFORMATION
  Report Type: 
  Country: None (occurrence: None)
  Receive Date: 20100111
  Receipt Date: 20100105
  Transmission Date: 20100710
  Serious: Yes (Hospitalization, Other)
  Sender: FDA-Public Use
  Company Number: US-ELI_LILLY_AND_COMPANY-US200912004320

PATIENT
  Sex: Female

DRUGS (12)
  1. HUMALOG [Suspect]
     Indication: DIABETES MELLITUS
     Dosage: UNK, UNK
     Dates: start: 20090501
  2. HUMALOG [Suspect]
     Dosage: 2.5 U, AS NEEDED
     Dates: end: 20090501
  3. HUMULIN N [Suspect]
     Indication: DIABETES MELLITUS
     Dosage: 25 U, DAILY (1/D)
     Dates: end: 19940101
  4. LEVEMIR [Concomitant]
  5. LYRICA [Concomitant]
  6. BACLOFEN [Concomitant]
  7. VALIUM [Concomitant]
  8. DIOVAN [Concomitant]
  9. SIMVASTATIN [Concomitant]
  10. ATENOLOL [Concomitant]
  11. HYDROCHLOROTHIAZIDE [Concomitant]
  12. CELEBREX [Concomitant]

REACTIONS (6)
  - BLOOD GLUCOSE DECREASED [None]
  - BLOOD GLUCOSE INCREASED [None]
  - CATARACT [None]
  - HYPOAESTHESIA [None]
  - HYPOGLYCAEMIC UNCONSCIOUSNESS [None]
  - STIFF-MAN SYNDROME [None]
